FAERS Safety Report 13027659 (Version 1)
Quarter: 2016Q4

REPORT INFORMATION
  Report Type: Spontaneous
  Country: US (occurrence: US)
  Receive Date: 20161214
  Receipt Date: 20161214
  Transmission Date: 20170207
  Serious: Yes (Other)
  Sender: FDA-Public Use
  Company Number: US-SA-2016SA203721

PATIENT
  Age: 80 Year
  Sex: Female
  Weight: 68 kg

DRUGS (10)
  1. PRASUGREL [Concomitant]
     Active Substance: PRASUGREL
  2. ALIROCUMAB PREFILLED PEN [Concomitant]
     Active Substance: ALIROCUMAB
     Dates: start: 20161101
  3. GLIMEPIRIDE. [Concomitant]
     Active Substance: GLIMEPIRIDE
  4. HUMULIN NOS [Concomitant]
     Active Substance: INSULIN HUMAN
     Indication: DIABETES MELLITUS
     Dosage: VARING 2-12 UNITS
  5. OMEPRAZOLE. [Concomitant]
     Active Substance: OMEPRAZOLE
  6. ASPIRIN. [Concomitant]
     Active Substance: ASPIRIN
  7. PRALUENT [Suspect]
     Active Substance: ALIROCUMAB
     Route: 065
     Dates: start: 20161101, end: 20161101
  8. LANTUS [Concomitant]
     Active Substance: INSULIN GLARGINE
     Indication: DIABETES MELLITUS
     Dosage: 24 UNITS AM AND 34 UNITS PM
  9. LOSARTAN. [Concomitant]
     Active Substance: LOSARTAN
  10. TIOTROPIUM [Concomitant]
     Active Substance: TIOTROPIUM

REACTIONS (4)
  - Muscle spasms [Not Recovered/Not Resolved]
  - Abasia [Not Recovered/Not Resolved]
  - Pain [Not Recovered/Not Resolved]
  - Mobility decreased [Not Recovered/Not Resolved]

NARRATIVE: CASE EVENT DATE: 20161107
